FAERS Safety Report 4428142-5 (Version None)
Quarter: 2004Q3

REPORT INFORMATION
  Report Type: 
  Country: None (occurrence: None)
  Receive Date: 20040726
  Receipt Date: 20040514
  Transmission Date: 20050211
  Serious: No
  Sender: FDA-Public Use
  Company Number: USA030536970

PATIENT
  Age: 80 Year
  Sex: Female

DRUGS (8)
  1. FORTEO [Suspect]
     Indication: OSTEOPOROSIS
     Dosage: 20 UG DAY
     Dates: start: 20030509
  2. DILAUDID [Concomitant]
  3. OXYCONTIN [Concomitant]
  4. PROVERA [Concomitant]
  5. ESTROGEN NOS [Concomitant]
  6. PRAVACHOL [Concomitant]
  7. IMDUR [Concomitant]
  8. VITAMIN D [Concomitant]

REACTIONS (6)
  - COLD SWEAT [None]
  - FEELING ABNORMAL [None]
  - INSOMNIA [None]
  - MAMMOGRAM [None]
  - MYALGIA [None]
  - NAUSEA [None]
